FAERS Safety Report 14117300 (Version 4)
Quarter: 2018Q1

REPORT INFORMATION
  Report Type: Spontaneous
  Country: PK (occurrence: PK)
  Receive Date: 20171023
  Receipt Date: 20180228
  Transmission Date: 20180508
  Serious: Yes (Hospitalization, Disabling, Other)
  Sender: FDA-Public Use
  Company Number: PK-BAUSCH-BL-2017-029616

PATIENT
  Age: 55 Year
  Sex: Male

DRUGS (3)
  1. PREDNISOLONE. [Suspect]
     Active Substance: PREDNISOLONE
     Route: 048
  2. BECLOMETASONE DIPROPIONATE/SALBUTAMOL [Suspect]
     Active Substance: ALBUTEROL SULFATE\BECLOMETHASONE DIPROPIONATE
     Indication: ASTHMA
     Dosage: ONE PUFF TWICE DAILY
     Route: 055
  3. PREDNISOLONE. [Suspect]
     Active Substance: PREDNISOLONE
     Indication: ASTHMA
     Dosage: UP TO 20 MG/DAY
     Route: 048

REACTIONS (3)
  - Osteoporosis [Unknown]
  - Spinal fracture [Unknown]
  - Spinal cord compression [Unknown]
